FAERS Safety Report 9850926 (Version 1)
Quarter: 2014Q1

REPORT INFORMATION
  Report Type: Spontaneous
  Country: GB (occurrence: None)
  Receive Date: 20140124
  Receipt Date: 20140124
  Transmission Date: 20141002
  Serious: Yes (Other)
  Sender: FDA-Public Use
  Company Number: 2014-000114

PATIENT
  Age: 63 Year
  Sex: Female
  Weight: 64 kg

DRUGS (1)
  1. DORYX [Suspect]
     Route: 048
     Dates: start: 20121116, end: 20121118

REACTIONS (2)
  - Syncope [None]
  - Nausea [None]
